FAERS Safety Report 18222426 (Version 3)
Quarter: 2020Q4

REPORT INFORMATION
  Report Type: Spontaneous
  Country: US (occurrence: US)
  Receive Date: 20200902
  Receipt Date: 20201016
  Transmission Date: 20210113
  Serious: No
  Sender: FDA-Public Use
  Company Number: US-ASTRAZENECA-2020SF09850

PATIENT
  Age: 16974 Day
  Sex: Female
  Weight: 89.4 kg

DRUGS (4)
  1. BYDUREON BCISE [Suspect]
     Active Substance: EXENATIDE
     Indication: DIABETES MELLITUS
     Dosage: 2.0MG UNKNOWN
     Route: 065
     Dates: start: 20200822
  2. BYDUREON BCISE [Suspect]
     Active Substance: EXENATIDE
     Indication: DIABETES MELLITUS
     Dosage: 2.0MG UNKNOWN
     Route: 065
     Dates: start: 20200814
  3. BYDUREON BCISE [Suspect]
     Active Substance: EXENATIDE
     Indication: THERAPY CHANGE
     Dosage: 2.0MG UNKNOWN
     Route: 065
     Dates: start: 20200814
  4. BYDUREON BCISE [Suspect]
     Active Substance: EXENATIDE
     Indication: THERAPY CHANGE
     Dosage: 2.0MG UNKNOWN
     Route: 065
     Dates: start: 20200822

REACTIONS (4)
  - Injection site pain [Recovering/Resolving]
  - Injection site pruritus [Recovering/Resolving]
  - Device leakage [Unknown]
  - Wrong technique in device usage process [Recovered/Resolved]

NARRATIVE: CASE EVENT DATE: 20200821
